FAERS Safety Report 10528657 (Version 1)
Quarter: 2014Q4

REPORT INFORMATION
  Report Type: Spontaneous
  Country: SE (occurrence: SE)
  Receive Date: 20141020
  Receipt Date: 20141020
  Transmission Date: 20150528
  Serious: Yes (Hospitalization)
  Sender: FDA-Public Use
  Company Number: SE-PFIZER INC-2014282736

PATIENT
  Age: 83 Year
  Sex: Female

DRUGS (11)
  1. SERTRALIN RANBAXY [Concomitant]
     Active Substance: SERTRALINE HYDROCHLORIDE
     Dosage: UNK
  2. BEHEPAN [Concomitant]
     Active Substance: HYDROXOCOBALAMIN
     Dosage: UNK
  3. TOVIAZ [Suspect]
     Active Substance: FESOTERODINE FUMARATE
     Indication: MICTURITION URGENCY
     Dosage: 4 MG, 1X/DAY
     Dates: start: 20110815, end: 201409
  4. SIMVASTATIN ARROW [Concomitant]
     Active Substance: SIMVASTATIN
     Dosage: UNK
  5. FUCITHALMIC [Concomitant]
     Dosage: UNK
  6. SALURES [Concomitant]
     Active Substance: BENDROFLUMETHIAZIDE
     Dosage: UNK
  7. VAGIFEM [Concomitant]
     Active Substance: ESTRADIOL
     Dosage: UNK
  8. KALEORID [Concomitant]
     Active Substance: POTASSIUM CHLORIDE
     Dosage: UNK
  9. LEVAXIN [Concomitant]
     Active Substance: LEVOTHYROXINE SODIUM
     Dosage: UNK
  10. TOVIAZ [Suspect]
     Active Substance: FESOTERODINE FUMARATE
     Dosage: 4 MG, 2X/DAY
     Dates: start: 201409, end: 2014
  11. OMEPRAZOL TEVA /00661201/ [Concomitant]
     Dosage: UNK

REACTIONS (3)
  - Dizziness [Recovered/Resolved]
  - Head injury [Recovered/Resolved]
  - Fall [Recovered/Resolved]

NARRATIVE: CASE EVENT DATE: 20140919
